FAERS Safety Report 25029807 (Version 1)
Quarter: 2025Q1

REPORT INFORMATION
  Report Type: Spontaneous
  Country: US (occurrence: US)
  Receive Date: 20250303
  Receipt Date: 20250303
  Transmission Date: 20250408
  Serious: Yes (Congenital Anomaly)
  Sender: ABBVIE
  Company Number: US-ABBVIE-6154976

PATIENT

DRUGS (2)
  1. QULIPTA [Suspect]
     Active Substance: ATOGEPANT
     Indication: Maternal exposure timing unspecified
     Route: 015
  2. UBRELVY [Suspect]
     Active Substance: UBROGEPANT
     Indication: Maternal exposure timing unspecified
     Route: 015

REACTIONS (4)
  - Cytogenetic abnormality [Not Recovered/Not Resolved]
  - Foetal exposure during pregnancy [Unknown]
  - Cardiovascular disorder [Not Recovered/Not Resolved]
  - Talipes [Not Recovered/Not Resolved]
